FAERS Safety Report 5404987-X (Version None)
Quarter: 2007Q3

REPORT INFORMATION
  Report Type: 
  Country: None (occurrence: None)
  Receive Date: 20070801
  Receipt Date: 20070717
  Transmission Date: 20080115
  Serious: Yes (Hospitalization)
  Sender: FDA-Public Use
  Company Number: 2007S1006642

PATIENT
  Age: 60 Year
  Sex: Male
  Weight: 94.5 kg

DRUGS (13)
  1. ALLOPURINOL TAB [Suspect]
     Indication: GOUT
     Dates: start: 20070417, end: 20070529
  2. LANTUS [Suspect]
     Indication: TYPE 2 DIABETES MELLITUS
     Dosage: 30 UNITS; 50 UNITS; SC
     Route: 058
     Dates: start: 20070520, end: 20070501
  3. LANTUS [Suspect]
     Indication: TYPE 2 DIABETES MELLITUS
     Dosage: 30 UNITS; 50 UNITS; SC
     Route: 058
     Dates: start: 20060101, end: 20070519
  4. LANTUS [Suspect]
     Indication: TYPE 2 DIABETES MELLITUS
     Dosage: 30 UNITS; 50 UNITS; SC
     Route: 058
     Dates: start: 20070601
  5. APIDRA [Suspect]
     Indication: TYPE 2 DIABETES MELLITUS
     Dosage: SUBCUTANEOUS
     Route: 058
  6. VALSARTAN [Concomitant]
  7. ATENOLOL [Concomitant]
  8. CLONIDINE [Concomitant]
  9. CLONAZEPAM [Concomitant]
  10. PREGABALIN [Concomitant]
  11. REGULAR INSULIN [Concomitant]
  12. GEMFIBROZIL [Concomitant]
  13. RENAGEL [Concomitant]

REACTIONS (4)
  - CONDITION AGGRAVATED [None]
  - DRUG RASH WITH EOSINOPHILIA AND SYSTEMIC SYMPTOMS [None]
  - PYREXIA [None]
  - RASH [None]
